FAERS Safety Report 21884635 (Version 1)
Quarter: 2023Q1

REPORT INFORMATION
  Report Type: Spontaneous
  Country: US (occurrence: US)
  Receive Date: 20230119
  Receipt Date: 20230119
  Transmission Date: 20230418
  Serious: No
  Sender: FDA-Public Use
  Company Number: US-PFIZER INC-202300021569

PATIENT
  Age: 69 Year
  Sex: Female
  Weight: 58.97 kg

DRUGS (2)
  1. PAXLOVID [Suspect]
     Active Substance: NIRMATRELVIR\RITONAVIR
     Indication: COVID-19 treatment
     Dosage: 3 TABLETS IN THE MORNING, 3 TABLETS AT NIGHT
     Dates: start: 20230113
  2. CURCUMIN [Concomitant]
     Active Substance: CURCUMIN
     Indication: Analgesic therapy
     Dosage: TAKES HIGH DOSE EXTRA STRENGTH

REACTIONS (6)
  - Diarrhoea [Unknown]
  - Dysphonia [Unknown]
  - Dry mouth [Unknown]
  - Upper respiratory tract congestion [Unknown]
  - Sinus congestion [Unknown]
  - Tremor [Not Recovered/Not Resolved]

NARRATIVE: CASE EVENT DATE: 20230114
